FAERS Safety Report 4458434-5 (Version None)
Quarter: 2004Q3

REPORT INFORMATION
  Report Type: 
  Country: None (occurrence: None)
  Receive Date: 20040922
  Receipt Date: 20031208
  Transmission Date: 20050211
  Serious: Yes (Hospitalization)
  Sender: FDA-Public Use
  Company Number: US-SHR-03-013989

PATIENT
  Age: 29 Year
  Sex: Male
  Weight: 88.4 kg

DRUGS (10)
  1. BETASERON [Suspect]
     Indication: MULTIPLE SCLEROSIS
     Dosage: 8 MIU, EVERY 2D, SUBCUTANEOUS
     Route: 058
     Dates: start: 19940401, end: 19991201
  2. BETASERON [Suspect]
     Indication: MULTIPLE SCLEROSIS
     Dosage: 8 MIU, EVERY 2D, SUBCUTANEOUS
     Route: 058
     Dates: start: 20020101
  3. DEPAKOTE [Concomitant]
  4. MECLIZINE [Concomitant]
  5. PEPCID [Concomitant]
  6. WELLBUTRIN [Concomitant]
  7. INDERAL ^WYETH-AYERST^ (PROPRANOLOL HYDROCHLORIDE) [Concomitant]
  8. ANTIVERT ^PFIZER^ (MECLOZINE HYDROCHLORIDE) [Concomitant]
  9. PREDNISONE [Concomitant]
  10. FELBATOL [Concomitant]

REACTIONS (3)
  - INJECTION SITE INDURATION [None]
  - INJECTION SITE INFECTION [None]
  - INJECTION SITE REACTION [None]
